FAERS Safety Report 6428783-X (Version None)
Quarter: 2009Q4

REPORT INFORMATION
  Report Type: 
  Country: None (occurrence: None)
  Receive Date: 20091105
  Receipt Date: 20091008
  Transmission Date: 20100525
  Serious: Yes (Life-Threatening, Hospitalization)
  Sender: FDA-Public Use
  Company Number: FR-PFIZER INC-2009287446

PATIENT
  Age: 80 Year
  Sex: Male
  Weight: 65 kg

DRUGS (4)
  1. IRINOTECAN HCL [Suspect]
     Indication: COLORECTAL CANCER
     Dosage: 255 MG (150 MG/M2), CYCLIC
     Dates: start: 20051008, end: 20051010
  2. FLUOROURACIL [Suspect]
     Indication: COLORECTAL CANCER
     Dosage: 1350 MG, (800 MG/M2), CYCLIC
     Route: 040
     Dates: start: 20051008, end: 20051010
  3. FLUOROURACIL [Suspect]
     Dosage: 2000 MG (1200 MG/M2), CYCLIC
     Route: 041
     Dates: start: 20051008, end: 20051010
  4. FOLINIC ACID [Suspect]
     Indication: COLORECTAL CANCER
     Dosage: 680 MG, (400 MG/M2), CYCLIC
     Dates: start: 20051008, end: 20051010

REACTIONS (3)
  - DIARRHOEA [None]
  - FEBRILE NEUTROPENIA [None]
  - RENAL FAILURE [None]
